FAERS Safety Report 5005463-9 (Version None)
Quarter: 2006Q2

REPORT INFORMATION
  Report Type: 
  Country: None (occurrence: None)
  Receive Date: 20060518
  Receipt Date: 20060315
  Transmission Date: 20061013
  Serious: Yes (Death, Hospitalization, Disabling)
  Sender: FDA-Public Use
  Company Number: US-MERCK-0603USA02517

PATIENT
  Age: 10 Year
  Sex: Male

DRUGS (2)
  1. VIOXX [Suspect]
     Indication: LUNG DISORDER
     Route: 048
  2. [THERAPY UNSPECIFIED] [Concomitant]
     Route: 065

REACTIONS (2)
  - OFF LABEL USE [None]
  - VIRAL MYOCARDITIS [None]
